FAERS Safety Report 7387036-6 (Version None)
Quarter: 2011Q1

REPORT INFORMATION
  Report Type: 
  Country: None (occurrence: None)
  Receive Date: 20110331
  Receipt Date: 20110303
  Transmission Date: 20110831
  Serious: Yes (Hospitalization, Other)
  Sender: FDA-Public Use
  Company Number: US-BAYER-201026384NA

PATIENT
  Sex: Female
  Weight: 42 kg

DRUGS (16)
  1. YAZ [Suspect]
     Indication: PREMENSTRUAL SYNDROME
     Dosage: UNK
     Route: 048
     Dates: start: 20080201, end: 20090101
  2. UNCODEABLE ^UNCLASSIFIABLE^ [Concomitant]
     Dosage: UNK
     Route: 048
     Dates: start: 20080917
  3. COLACE [Concomitant]
  4. IMITREX [Concomitant]
     Dosage: UNK
     Route: 045
  5. DESOXIMETASONE [Concomitant]
     Dosage: UNK
     Dates: start: 20080731
  6. ZOFRAN [Concomitant]
  7. YASMIN [Suspect]
     Indication: DYSMENORRHOEA
  8. COSAMIN [Concomitant]
  9. YASMIN [Suspect]
     Indication: MENORRHAGIA
  10. MINOCYCLINE [Concomitant]
     Dosage: UNK
     Route: 048
  11. MIRALAX [Concomitant]
  12. YAZ [Suspect]
     Indication: DYSMENORRHOEA
  13. YAZ [Suspect]
     Indication: MENORRHAGIA
  14. YASMIN [Suspect]
     Indication: PREMENSTRUAL SYNDROME
     Route: 048
     Dates: start: 20080201
  15. UNCODEABLE ^UNCLASSIFIABLE^ [Concomitant]
     Dosage: UNK
     Dates: start: 20080626
  16. ACETAMINOPHEN + COD. PHOSP. [Concomitant]
     Dosage: UNK
     Route: 048
     Dates: start: 20080514

REACTIONS (2)
  - BILIARY DYSKINESIA [None]
  - GALLBLADDER DISORDER [None]
